FAERS Safety Report 9740434 (Version 1)
Quarter: 2013Q4

REPORT INFORMATION
  Report Type: Spontaneous
  Country: US (occurrence: US)
  Receive Date: 20131209
  Receipt Date: 20131209
  Transmission Date: 20140711
  Serious: Yes (Other)
  Sender: FDA-Public Use
  Company Number: US-B.I. PHARMACEUTICALS,INC./RIDGEFIELD-2013-BI-40237BP

PATIENT
  Sex: Male
  Weight: 97 kg

DRUGS (11)
  1. ATROVENT INHALATION SOLUTION [Suspect]
     Indication: PNEUMONIA
     Dosage: STRENGTH: 18 MCG / 103 MCG; DAILY DOSE: 36 MCG/ 200 MCG
     Route: 055
     Dates: start: 2010
  2. CARDIZEM [Concomitant]
     Indication: HYPERTENSION
     Dosage: 120 MG
     Route: 048
     Dates: start: 201011
  3. FOLIC ACID [Concomitant]
     Dosage: 1 MG
     Route: 048
     Dates: start: 201011
  4. LACTULOSE [Concomitant]
     Indication: DIARRHOEA
     Route: 048
     Dates: start: 201011
  5. METOPROLOL [Concomitant]
     Indication: HYPERTENSION
     Dosage: 50 MG
     Route: 048
     Dates: start: 201011
  6. MOMETASONE [Concomitant]
     Indication: NASAL CONGESTION
     Route: 055
     Dates: start: 2012
  7. MULTIVITAMIN [Concomitant]
     Dates: start: 2010
  8. PHYTONADIONE [Concomitant]
     Indication: PLATELET COUNT DECREASED
     Dates: start: 201301
  9. ACIPHEX [Concomitant]
     Indication: GASTROOESOPHAGEAL REFLUX DISEASE
     Dosage: 20 MG
     Route: 048
     Dates: start: 2010
  10. SPIRONLACTONE [Concomitant]
     Indication: FLUID OVERLOAD
     Dosage: 100 MG
     Route: 048
     Dates: start: 2011
  11. VIAGRA [Concomitant]
     Dosage: 100 MG
     Route: 048

REACTIONS (4)
  - Prostate cancer [Not Recovered/Not Resolved]
  - Dyspnoea exertional [Not Recovered/Not Resolved]
  - Orthopnoea [Not Recovered/Not Resolved]
  - Off label use [Not Recovered/Not Resolved]
